FAERS Safety Report 5290203-9 (Version None)
Quarter: 2007Q2

REPORT INFORMATION
  Report Type: 
  Country: None (occurrence: None)
  Receive Date: 20070402
  Receipt Date: 20070319
  Transmission Date: 20071010
  Serious: Yes (Death)
  Sender: FDA-Public Use
  Company Number: 2007-01531

PATIENT
  Age: 60 Year
  Sex: 0

DRUGS (3)
  1. VERAPAMIL [Suspect]
  2. PRAVASTATIN SODIUM [Suspect]
  3. MIRTAZAPINE [Suspect]

REACTIONS (1)
  - DEATH [None]
